FAERS Safety Report 20358623 (Version 1)
Quarter: 2022Q1

REPORT INFORMATION
  Report Type: Spontaneous
  Country: US (occurrence: US)
  Receive Date: 20220120
  Receipt Date: 20220120
  Transmission Date: 20220423
  Serious: No
  Sender: FDA-Public Use
  Company Number: US-NOVOPROD-822190

PATIENT
  Sex: Female

DRUGS (2)
  1. OZEMPIC [Suspect]
     Active Substance: SEMAGLUTIDE
     Indication: Insulin resistance
     Dosage: 0.25 MG, QW
     Route: 058
  2. OZEMPIC [Suspect]
     Active Substance: SEMAGLUTIDE
     Dosage: 0.12 MG, QW

REACTIONS (3)
  - Influenza like illness [Recovered/Resolved]
  - Wrong technique in product usage process [Unknown]
  - Off label use [Not Recovered/Not Resolved]
